FAERS Safety Report 5385653-6 (Version None)
Quarter: 2007Q3

REPORT INFORMATION
  Report Type: 
  Country: None (occurrence: None)
  Receive Date: 20070712
  Receipt Date: 20070702
  Transmission Date: 20080115
  Serious: Yes (Hospitalization, Other)
  Sender: FDA-Public Use
  Company Number: US-PFIZER INC-2006122188

PATIENT
  Sex: Female
  Weight: 83.9 kg

DRUGS (2)
  1. CELEBREX [Suspect]
     Indication: PAIN
     Route: 048
     Dates: start: 19990901, end: 20000701
  2. VIOXX [Suspect]
     Indication: PAIN
     Route: 048
     Dates: start: 20000821, end: 20000823

REACTIONS (5)
  - ABDOMINAL PAIN UPPER [None]
  - CARDIAC FAILURE CONGESTIVE [None]
  - HAEMATOCHEZIA [None]
  - HYPOKINESIA [None]
  - MYOCARDIAL INFARCTION [None]
